FAERS Safety Report 13465388 (Version 1)
Quarter: 2017Q2

REPORT INFORMATION
  Report Type: Spontaneous
  Country: US (occurrence: US)
  Receive Date: 20170421
  Receipt Date: 20170421
  Transmission Date: 20170830
  Serious: No
  Sender: FDA-Public Use
  Company Number: US-TEVA-682706USA

PATIENT
  Age: 83 Year
  Sex: Female

DRUGS (1)
  1. LEVALBUTEROL. [Suspect]
     Active Substance: LEVALBUTEROL
     Indication: ASTHMA
     Route: 065

REACTIONS (6)
  - Dyspepsia [Unknown]
  - Gastroenteritis [Unknown]
  - Vomiting [Unknown]
  - Dry mouth [Unknown]
  - Diarrhoea [Unknown]
  - Nausea [Unknown]
